FAERS Safety Report 7978250-7 (Version None)
Quarter: 2011Q4

REPORT INFORMATION
  Report Type: 
  Country: None (occurrence: None)
  Receive Date: 20111214
  Receipt Date: 20111206
  Transmission Date: 20120403
  Serious: Yes (Hospitalization, Other)
  Sender: FDA-Public Use
  Company Number: FR-PFIZER INC-2011296887

PATIENT
  Age: 58 Year
  Sex: Male

DRUGS (13)
  1. REYATAZ [Concomitant]
     Indication: HIV INFECTION
     Dosage: UNK
     Dates: start: 20100625
  2. XANAX [Suspect]
     Dosage: 0.25 MG, 2X/DAY
     Route: 048
     Dates: end: 20111012
  3. ATARAX [Suspect]
     Dosage: 25 MG, 1X/DAY
     Route: 048
     Dates: start: 20100625, end: 20111006
  4. TIAPRIDAL [Suspect]
     Dosage: 300 MG, 1X/DAY
     Route: 048
     Dates: start: 20100625, end: 20111006
  5. MARAVIROC [Concomitant]
     Indication: HIV INFECTION
     Dosage: UNK
     Dates: start: 20100709
  6. GARDENALE [Suspect]
     Dosage: 180 MG, 1X/DAY
     Route: 048
     Dates: start: 20111014, end: 20111014
  7. HAVLANE [Suspect]
     Dosage: 0.5 DF, 1X/DAY
     Route: 048
     Dates: start: 20100625, end: 20111006
  8. PAROXETINE HCL [Suspect]
     Dosage: 20 MG, 1X/DAY
     Route: 048
     Dates: start: 20100625, end: 20111010
  9. XANAX [Suspect]
     Dosage: 0.5 MG X 5 DF (2.5 MG), DAILY
     Route: 048
     Dates: start: 20100625
  10. XANAX [Suspect]
     Dosage: 0.5 MG X 2 DF (1 MG), DAILY
     Route: 048
  11. GARDENALE [Suspect]
     Dosage: 200 MG, 1X/DAY
     Route: 048
     Dates: end: 20111013
  12. ABACAVIR SULFATE [Concomitant]
     Indication: HIV INFECTION
     Dosage: UNK
     Dates: start: 20100625
  13. NORVIR [Concomitant]
     Indication: HIV INFECTION
     Dosage: UNK
     Dates: start: 20100625

REACTIONS (9)
  - FALL [None]
  - HYPOKINESIA [None]
  - CRANIOCEREBRAL INJURY [None]
  - MAJOR DEPRESSION [None]
  - HIV TEST POSITIVE [None]
  - ELECTROENCEPHALOGRAM ABNORMAL [None]
  - SOMNOLENCE [None]
  - PHLEBOTOMY [None]
  - SUICIDAL IDEATION [None]
